FAERS Safety Report 4459925-3 (Version None)
Quarter: 2004Q3

REPORT INFORMATION
  Report Type: 
  Country: None (occurrence: None)
  Receive Date: 20040928
  Receipt Date: 20030908
  Transmission Date: 20050211
  Serious: No
  Sender: FDA-Public Use
  Company Number: US-GLAXOSMITHKLINE-A0424940A

PATIENT
  Sex: Male

DRUGS (1)
  1. SEREVENT [Suspect]
     Indication: ILL-DEFINED DISORDER
     Route: 055

REACTIONS (5)
  - CHEST DISCOMFORT [None]
  - DRUG HYPERSENSITIVITY [None]
  - DYSPNOEA [None]
  - ERYTHEMA [None]
  - LOCAL SWELLING [None]
